FAERS Safety Report 8501764 (Version 3)
Quarter: 2012Q4

REPORT INFORMATION
  Report Type: 
  Country: US (occurrence: US)
  Receive Date: 20120410
  Receipt Date: 20121125
  Transmission Date: 20130627
  Serious: Yes (Hospitalization)
  Sender: FDA-Public Use
  Company Number: US-BAYER-2012-032593

PATIENT
  Age: 18 Year
  Sex: Female
  Weight: 58.05 kg

DRUGS (9)
  1. YAZ [Suspect]
     Indication: ACNE
     Dosage: UNK UNK, QD
     Route: 048
     Dates: start: 200909, end: 201006
  2. YAZ [Suspect]
     Indication: HEAVY PERIODS
  3. YAZ [Suspect]
     Indication: CONTRACEPTION
  4. YAZ [Suspect]
     Indication: MENSES IRREGULAR WITH EXCESSIVE BLEEDING
  5. COMBIVENT [Concomitant]
     Indication: SHORTNESS OF BREATH
     Dosage: 2 puff(s), Q4HR
  6. ALBUTEROL INHALER [Concomitant]
     Indication: ASTHMA
     Dosage: 2 puff(s), Q4HR while awake
     Dates: start: 20100605
  7. NORCO [Concomitant]
     Indication: PAIN
     Dosage: UNK UNK, PRN
  8. TUSSIONEX [Concomitant]
     Indication: COUGH
  9. ZITHROMAX [Concomitant]
     Dosage: daily

REACTIONS (11)
  - Pulmonary embolism [Recovered/Resolved]
  - Pulmonary infarction [None]
  - Chest pain [Recovered/Resolved]
  - Cough [Recovered/Resolved]
  - Insomnia [None]
  - Pain [None]
  - Injury [None]
  - General physical health deterioration [None]
  - Emotional distress [None]
  - Anxiety [None]
  - Fear [None]
